FAERS Safety Report 4936598-4 (Version None)
Quarter: 2006Q1

REPORT INFORMATION
  Report Type: 
  Country: None (occurrence: None)
  Receive Date: 20060307
  Receipt Date: 20050629
  Transmission Date: 20060701
  Serious: Yes (Hospitalization)
  Sender: FDA-Public Use
  Company Number: US-MERCK-0506USA04337

PATIENT
  Age: 50 Year
  Sex: Male
  Weight: 98 kg

DRUGS (5)
  1. VIOXX [Suspect]
     Indication: INTERVERTEBRAL DISC PROTRUSION
     Route: 048
     Dates: start: 20040101, end: 20040301
  2. VIOXX [Suspect]
     Route: 048
     Dates: start: 20040501, end: 20040901
  3. VIOXX [Suspect]
     Indication: BACK PAIN
     Route: 048
     Dates: start: 20040101, end: 20040301
  4. VIOXX [Suspect]
     Route: 048
     Dates: start: 20040501, end: 20040901
  5. VIOXX [Suspect]
     Route: 048
     Dates: start: 20040321, end: 20040501

REACTIONS (2)
  - MYOCARDIAL INFARCTION [None]
  - PRESCRIBED OVERDOSE [None]
